FAERS Safety Report 5480990-9 (Version None)
Quarter: 2007Q4

REPORT INFORMATION
  Report Type: 
  Country: None (occurrence: None)
  Receive Date: 20071004
  Receipt Date: 20070920
  Transmission Date: 20080405
  Serious: Yes (Other)
  Sender: FDA-Public Use
  Company Number: JP-1163962

PATIENT
  Age: 73 Year
  Sex: Female

DRUGS (6)
  1. BSS PLUS [Suspect]
     Indication: CATARACT OPERATION
     Dosage: 400 ML; INTRAOCULAR
     Route: 031
     Dates: start: 20070822, end: 20070822
  2. HEALON (HYALURONATE SODIUM) [Concomitant]
  3. BOSMIN (EPINEPHRINE) [Concomitant]
  4. XYLOCAINE (XYLOCAINE W/GLUCOSE) [Concomitant]
  5. BETAMETHASONE [Concomitant]
  6. TOBYRAMYCIN SULFATE (TOBRAMYCIN SULFATE) [Concomitant]

REACTIONS (4)
  - CONJUNCTIVAL HYPERAEMIA [None]
  - CORNEAL OEDEMA [None]
  - CORNEAL OPACITY [None]
  - DEVICE MALFUNCTION [None]
